FAERS Safety Report 8914503 (Version 1)
Quarter: 2012Q4

REPORT INFORMATION
  Report Type: 
  Country: GB (occurrence: GB)
  Receive Date: 20121119
  Receipt Date: 20121119
  Transmission Date: 20130627
  Serious: Yes (Other)
  Sender: FDA-Public Use
  Company Number: GB-PFIZER INC-2012283695

PATIENT
  Sex: Female
  Weight: 73.4 kg

DRUGS (1)
  1. METHYLPREDNISOLONE [Suspect]
     Dosage: 5 mg, 2x/day
     Route: 048
     Dates: start: 20121029, end: 20121029

REACTIONS (4)
  - Arthralgia [Recovering/Resolving]
  - Nausea [Recovering/Resolving]
  - Vomiting [Recovering/Resolving]
  - Eye movement disorder [Recovering/Resolving]
